FAERS Safety Report 6819010-X (Version None)
Quarter: 2010Q3

REPORT INFORMATION
  Report Type: 
  Country: None (occurrence: None)
  Receive Date: 20100707
  Receipt Date: 20100628
  Transmission Date: 20110219
  Serious: Yes (Hospitalization, Other)
  Sender: FDA-Public Use
  Company Number: US-TYCO HEALTHCARE/MALLINCKRODT-T201001020

PATIENT
  Sex: Female
  Weight: 97.506 kg

DRUGS (19)
  1. OPTIMARK [Suspect]
     Indication: NUCLEAR MAGNETIC RESONANCE IMAGING
     Dosage: 40 ML, SINGLE
     Route: 042
     Dates: start: 20051219, end: 20051219
  2. MAGNEVIST [Suspect]
     Indication: NUCLEAR MAGNETIC RESONANCE IMAGING
     Dosage: 20 ML, SINGLE
     Route: 042
     Dates: start: 20060210, end: 20060210
  3. OMNISCAN [Suspect]
     Indication: NUCLEAR MAGNETIC RESONANCE IMAGING
     Dosage: 20 ML, SINGLE
     Route: 042
     Dates: start: 20070412, end: 20070412
  4. OMNISCAN [Suspect]
     Dosage: 20 ML, SINGLE
     Route: 042
     Dates: start: 20070802, end: 20070802
  5. OMNISCAN [Suspect]
     Dosage: 15 ML, SINGLE
     Route: 042
     Dates: start: 20070914, end: 20070914
  6. GADOLINIUM [Suspect]
     Indication: NUCLEAR MAGNETIC RESONANCE IMAGING
     Dosage: UNK
     Dates: start: 20060828, end: 20060828
  7. NORVASC [Concomitant]
  8. CYMBALTA [Concomitant]
  9. TYLENOL (CAPLET) [Concomitant]
  10. LISINOPRIL [Concomitant]
  11. SYNTHROID [Concomitant]
  12. CATAPRES                           /00171101/ [Concomitant]
  13. ALLOPURINOL [Concomitant]
  14. KLONOPIN [Concomitant]
  15. UROCIT-K [Concomitant]
  16. NEXIUM [Concomitant]
  17. INSULIN [Concomitant]
  18. LABETALOL HCL [Concomitant]
  19. FUROSEMIDE [Concomitant]

REACTIONS (24)
  - ABDOMINAL PAIN UPPER [None]
  - ACUTE RESPIRATORY FAILURE [None]
  - ARTERIOVENOUS GRAFT SITE ABSCESS [None]
  - ASTHENIA [None]
  - ATRIAL FIBRILLATION [None]
  - DIABETIC ULCER [None]
  - DIARRHOEA [None]
  - DRUG PRESCRIBING ERROR [None]
  - FLUID OVERLOAD [None]
  - HAEMOPTYSIS [None]
  - HEPATIC ENCEPHALOPATHY [None]
  - LEUKOPENIA [None]
  - MENTAL STATUS CHANGES [None]
  - NAUSEA [None]
  - NEPHROGENIC SYSTEMIC FIBROSIS [None]
  - PANCYTOPENIA [None]
  - PERIPHERAL VASCULAR DISORDER [None]
  - PNEUMONIA HAEMOPHILUS [None]
  - PNEUMOTHORAX [None]
  - PYREXIA [None]
  - SKIN INFECTION [None]
  - STAPHYLOCOCCAL SEPSIS [None]
  - SUBCUTANEOUS ABSCESS [None]
  - VOMITING [None]
